FAERS Safety Report 9139383 (Version 2)
Quarter: 2013Q2

REPORT INFORMATION
  Report Type: Report from Study
  Country: US (occurrence: US)
  Receive Date: 20130305
  Receipt Date: 20130429
  Transmission Date: 20140414
  Serious: Yes (Death)
  Sender: FDA-Public Use
  Company Number: PHEH2013US005131

PATIENT
  Sex: Female

DRUGS (1)
  1. TOBI [Suspect]
     Dosage: 300 UG UD
     Dates: start: 20121119

REACTIONS (1)
  - Transplant rejection [Fatal]
